FAERS Safety Report 7573156 (Version 6)
Quarter: 2012Q4

REPORT INFORMATION
  Report Type: Report from Study
  Country: JP (occurrence: JP)
  Receive Date: 20100903
  Receipt Date: 20121105
  Transmission Date: 20130627
  Serious: Yes (Hospitalization)
  Sender: FDA-Public Use
  Company Number: PHHY2010JP55568

PATIENT
  Age: 77 Year
  Sex: Male

DRUGS (7)
  1. AMN107 [Suspect]
     Indication: CHRONIC MYELOID LEUKAEMIA
     Dosage: 400 mg, daily
     Route: 048
     Dates: start: 20090911, end: 20100727
  2. TAKEPRON [Concomitant]
     Indication: GASTRITIS
     Dosage: 15 mg, daily
     Route: 048
     Dates: end: 20100727
  3. ZYLORIC [Concomitant]
     Indication: HYPERURICAEMIA
     Dosage: 100 mg, daily
     Route: 048
     Dates: end: 20100727
  4. DIFLUCAN [Concomitant]
     Indication: PROPHYLAXIS
     Dosage: 100 mg, daily
     Route: 048
     Dates: end: 20100727
  5. MAGMITT [Concomitant]
     Indication: CONSTIPATION
     Dosage: 500 mg, daily
     Route: 048
     Dates: end: 20100727
  6. LOXOPROFEN [Concomitant]
     Indication: BACK PAIN
     Dosage: UNK UKN, UNK
     Route: 048
     Dates: end: 20100727
  7. SHAKUYAKUKANZOUTOU [Concomitant]
     Indication: PROPHYLAXIS
     Dosage: 7.5 g, daily
     Route: 048
     Dates: start: 20091030

REACTIONS (5)
  - Interstitial lung disease [Recovered/Resolved]
  - Respiratory failure [Recovering/Resolving]
  - Emphysema [Not Recovered/Not Resolved]
  - Pyrexia [Recovered/Resolved]
  - Pleural effusion [Recovered/Resolved]
